FAERS Safety Report 7710432-1 (Version None)
Quarter: 2011Q3

REPORT INFORMATION
  Report Type: 
  Country: None (occurrence: None)
  Receive Date: 20110825
  Receipt Date: 20110812
  Transmission Date: 20111222
  Serious: Yes (Other)
  Sender: FDA-Public Use
  Company Number: MX-ELI_LILLY_AND_COMPANY-MX201108004672

PATIENT
  Age: 75 Year
  Sex: Female
  Weight: 57 kg

DRUGS (6)
  1. TIZANIDINE HCL [Concomitant]
     Indication: MUSCLE RELAXANT THERAPY
  2. TAFIROL [Concomitant]
     Indication: PAIN
     Dosage: 1 MG, UNK
  3. GABAPENTINE [Concomitant]
     Indication: PAIN
  4. CALCORT [Concomitant]
     Indication: ASTHMA
  5. FORTEO [Suspect]
     Indication: OSTEOPOROSIS
     Dosage: 20 UG, QD
     Route: 058
     Dates: start: 20110101, end: 20110801
  6. FORTEO [Suspect]
     Dosage: 20 UG, QD
     Route: 058
     Dates: start: 20110801

REACTIONS (1)
  - NEOPLASM SKIN [None]
